FAERS Safety Report 14828655 (Version 1)
Quarter: 2018Q2

REPORT INFORMATION
  Report Type: Report from Study
  Country: US (occurrence: US)
  Receive Date: 20180430
  Receipt Date: 20180430
  Transmission Date: 20180711
  Serious: Yes (Hospitalization, Other)
  Sender: FDA-Public Use
  Company Number: PHHO2018US005480

PATIENT
  Sex: Female
  Weight: 83.5 kg

DRUGS (3)
  1. IFOSFAMIDE. [Suspect]
     Active Substance: IFOSFAMIDE
     Indication: SOFT TISSUE SARCOMA
     Dosage: 2500 MG/M2, QD OVER 2-4 HOURS ON DAYS 1-3 OF WEEKS 1,4,7 AND 10
     Route: 041
     Dates: start: 20180308, end: 20180311
  2. VOTRIENT [Suspect]
     Active Substance: PAZOPANIB HYDROCHLORIDE
     Indication: SOFT TISSUE SARCOMA
     Dosage: 600 MG, QD (WEEK 16 TO 25)
     Route: 048
     Dates: start: 20180308
  3. DOXORUBICIN [Suspect]
     Active Substance: DOXORUBICIN
     Indication: SOFT TISSUE SARCOMA
     Dosage: 37.5 MG/M2, QD OVER 1-15 MINUTES ON DAYS 1-2 OF WEEKS 1 AND 4
     Route: 041
     Dates: start: 20180308, end: 20180309

REACTIONS (4)
  - Neutrophil count decreased [Recovered/Resolved]
  - Anaemia [Not Recovered/Not Resolved]
  - Febrile neutropenia [Recovered/Resolved]
  - Platelet count decreased [Not Recovered/Not Resolved]

NARRATIVE: CASE EVENT DATE: 20180316
